FAERS Safety Report 26022828 (Version 3)
Quarter: 2025Q4

REPORT INFORMATION
  Report Type: Spontaneous
  Country: BR (occurrence: BR)
  Receive Date: 20251110
  Receipt Date: 20251118
  Transmission Date: 20260117
  Serious: Yes (Other)
  Sender: NOVARTIS
  Company Number: BR-002147023-NVSC2025BR170931

PATIENT
  Age: 15 Year
  Sex: Female
  Weight: 44 kg

DRUGS (10)
  1. PIQRAY [Suspect]
     Active Substance: ALPELISIB
     Indication: PIK3CA-activated mutation
     Dosage: 50 MG (FOR  THREE MONTHS)
     Route: 065
  2. PIQRAY [Suspect]
     Active Substance: ALPELISIB
     Indication: Lipoma
     Dosage: 100 MG, QD
     Route: 065
     Dates: start: 202407
  3. PIQRAY [Suspect]
     Active Substance: ALPELISIB
     Dosage: 50 MG
     Route: 065
  4. PIQRAY [Suspect]
     Active Substance: ALPELISIB
     Dosage: 75 MG
     Route: 065
  5. PIQRAY [Suspect]
     Active Substance: ALPELISIB
     Dosage: 100 MG
     Route: 065
  6. DIPYRONE [Concomitant]
     Active Substance: DIPYRONE
     Indication: Pain
     Dosage: 500 MG, Q6H (2 TABLETS)
     Route: 048
  7. DIPYRONE [Concomitant]
     Active Substance: DIPYRONE
     Indication: Pyrexia
  8. DESOGESTREL [Concomitant]
     Active Substance: DESOGESTREL
     Indication: Product used for unknown indication
     Dosage: UNK
     Route: 065
  9. SERTRALINE [Concomitant]
     Active Substance: SERTRALINE HYDROCHLORIDE
     Indication: Product used for unknown indication
     Dosage: UNK, QD
     Route: 065
  10. DEPAKENE [Concomitant]
     Active Substance: VALPROIC ACID
     Indication: Product used for unknown indication
     Dosage: UNK, Q12H
     Route: 065

REACTIONS (32)
  - Suicide attempt [Unknown]
  - Uterine infection [Unknown]
  - Oophoritis [Unknown]
  - Lipoma [Unknown]
  - Malignant neoplasm progression [Unknown]
  - Metastases to spine [Unknown]
  - Syncope [Unknown]
  - Seizure [Unknown]
  - Helicobacter infection [Unknown]
  - Gastrointestinal infection [Unknown]
  - Pain [Unknown]
  - Off label use [Unknown]
  - Rash [Unknown]
  - Diarrhoea [Not Recovered/Not Resolved]
  - Nausea [Not Recovered/Not Resolved]
  - Decreased appetite [Unknown]
  - Stomach mass [Unknown]
  - Chronic gastritis [Unknown]
  - Fatigue [Not Recovered/Not Resolved]
  - Vomiting [Unknown]
  - Back pain [Unknown]
  - Pyrexia [Unknown]
  - Cough [Unknown]
  - Weight decreased [Unknown]
  - Aphthous ulcer [Unknown]
  - Menstrual disorder [Unknown]
  - Ectopic thyroid [Unknown]
  - Scar [Unknown]
  - Stomatitis [Not Recovered/Not Resolved]
  - Faeces discoloured [Unknown]
  - Chromaturia [Unknown]
  - Otitis media [Unknown]

NARRATIVE: CASE EVENT DATE: 20250507
